FAERS Safety Report 7862738-3 (Version None)
Quarter: 2011Q4

REPORT INFORMATION
  Report Type: 
  Country: None (occurrence: None)
  Receive Date: 20111027
  Receipt Date: 20101112
  Transmission Date: 20120403
  Serious: No
  Sender: FDA-Public Use
  Company Number: US-AMGEN-KDL317650

PATIENT
  Age: 41 Year
  Sex: Female

DRUGS (2)
  1. ENBREL [Suspect]
     Indication: ANKYLOSING SPONDYLITIS
     Dosage: 50 MG, QWK
     Route: 058
  2. ENBREL [Suspect]
     Dates: start: 20070101

REACTIONS (17)
  - NIGHT SWEATS [None]
  - BRONCHIAL DISORDER [None]
  - INJECTION SITE ERYTHEMA [None]
  - SINUSITIS [None]
  - INJECTION SITE RASH [None]
  - THINKING ABNORMAL [None]
  - FATIGUE [None]
  - RASH ERYTHEMATOUS [None]
  - DIARRHOEA [None]
  - ERYTHEMA [None]
  - DYSPNOEA [None]
  - DISTURBANCE IN ATTENTION [None]
  - COUGH [None]
  - MALAISE [None]
  - LOCAL SWELLING [None]
  - ORAL HERPES [None]
  - INJECTION SITE SWELLING [None]
